FAERS Safety Report 16202216 (Version 1)
Quarter: 2019Q2

REPORT INFORMATION
  Report Type: Report from Study
  Country: US (occurrence: US)
  Receive Date: 20190416
  Receipt Date: 20190416
  Transmission Date: 20190711
  Serious: Yes (Other)
  Sender: FDA-Public Use
  Company Number: US-ROCHE-2121519

PATIENT
  Age: 68 Year
  Sex: Female
  Weight: 72.64 kg

DRUGS (7)
  1. OCREVUS [Suspect]
     Active Substance: OCRELIZUMAB
     Dosage: SECOND HALF DOSE
     Route: 042
     Dates: start: 20180521
  2. OCREVUS [Suspect]
     Active Substance: OCRELIZUMAB
     Indication: MULTIPLE SCLEROSIS
     Dosage: DAY 1, DAY 14 AND THEN SHE WAS NOT SURE
     Route: 042
     Dates: start: 20180507
  3. SOLU-MEDROL [Suspect]
     Active Substance: METHYLPREDNISOLONE SODIUM SUCCINATE
     Indication: PRODUCT USED FOR UNKNOWN INDICATION
     Dosage: ONGOING : NO
     Route: 042
     Dates: end: 20180125
  4. RITALIN [Concomitant]
     Active Substance: METHYLPHENIDATE HYDROCHLORIDE
     Indication: FATIGUE
     Dosage: ONGOING : YES
     Route: 048
     Dates: start: 201801
  5. RITUXAN [Suspect]
     Active Substance: RITUXIMAB
     Indication: MYASTHENIA GRAVIS
  6. PREDNISONE. [Concomitant]
     Active Substance: PREDNISONE
     Indication: MYASTHENIA GRAVIS
     Dosage: STARTED SMALL, WENT UP AND THE CAME DOWN IN DOSAGE ;ONGOING: NO
     Route: 048
     Dates: start: 201610, end: 201709
  7. RITUXAN [Suspect]
     Active Substance: RITUXIMAB
     Indication: MULTIPLE SCLEROSIS
     Dosage: LAST DOSE WAS 4 MONTHS FORM PREVIOUS DOSE ;ONGOING: NO
     Route: 042
     Dates: start: 201701, end: 20180125

REACTIONS (10)
  - Feeling abnormal [Recovered/Resolved]
  - Intentional product use issue [Unknown]
  - Muscle disorder [Recovered/Resolved]
  - Dizziness [Recovered/Resolved]
  - Confusional state [Recovered/Resolved]
  - Pruritus [Recovering/Resolving]
  - Fatigue [Not Recovered/Not Resolved]
  - Fatigue [Unknown]
  - Depression [Recovered/Resolved]
  - Off label use [Unknown]

NARRATIVE: CASE EVENT DATE: 20180127
